FAERS Safety Report 16425893 (Version 2)
Quarter: 2019Q3

REPORT INFORMATION
  Report Type: Report from Study
  Country: GB (occurrence: GB)
  Receive Date: 20190613
  Receipt Date: 20190711
  Transmission Date: 20191004
  Serious: Yes (Hospitalization, Other)
  Sender: FDA-Public Use
  Company Number: GB-MYLANLABS-2019M1054176

PATIENT
  Age: 83 Year
  Sex: Male

DRUGS (28)
  1. MORPHINE SULPHATE [Concomitant]
     Active Substance: MORPHINE SULFATE
     Indication: CONSTIPATION
     Dosage: 5 MG, 2 HOURLY, AS REQUIRED
     Route: 058
     Dates: start: 20151215
  2. MIDAZOLAM [Concomitant]
     Active Substance: MIDAZOLAM HYDROCHLORIDE
     Indication: AGITATION
     Dosage: 5.0 MG,  2 HOURLY
     Route: 058
  3. MIDAZOLAM [Concomitant]
     Active Substance: MIDAZOLAM HYDROCHLORIDE
     Indication: DYSPNOEA
     Dosage: 5 MG, EVERY 02 HOURS (AS REQUIRED)
     Route: 058
     Dates: start: 20151215
  4. SENNA                              /00142201/ [Concomitant]
     Active Substance: SENNA LEAF
     Indication: CONSTIPATION
     Dosage: 15 MILLIGRAM DAILY; AS REQUIRED
     Route: 048
     Dates: start: 20151127
  5. MORPHINE SULPHATE [Concomitant]
     Active Substance: MORPHINE SULFATE
     Dosage: 5 UNK 2 HOURLY
     Route: 058
  6. CO-AMOXICLAV                       /00756801/ [Concomitant]
     Active Substance: AMOXICILLIN\CLAVULANIC ACID
     Indication: LUNG INFECTION
     Dosage: 1857 MILLIGRAM, QD
     Route: 048
     Dates: start: 20151215, end: 20151220
  7. HYDROCORTISONE. [Concomitant]
     Active Substance: HYDROCORTISONE
     Indication: CHRONIC LYMPHOCYTIC LEUKAEMIA
     Dosage: 80 MILLIGRAM
     Route: 042
     Dates: start: 20150409, end: 20150917
  8. LEVOMEPROMAZINE [Concomitant]
     Active Substance: LEVOMEPROMAZINE
     Dosage: 6.25 MILLIGRAM EVERY 6 HOURS, AS REQUIRED
     Route: 058
  9. CODEINE PHOSPHATE [Concomitant]
     Active Substance: CODEINE PHOSPHATE
     Dosage: 30 MILLIGRAM, QD
     Route: 048
     Dates: start: 20151215
  10. PARACETAMOL [Concomitant]
     Active Substance: ACETAMINOPHEN
     Indication: CHRONIC LYMPHOCYTIC LEUKAEMIA
     Dosage: 1000 MILLIGRAM
     Route: 048
     Dates: start: 20150407, end: 20150917
  11. ACYCLOVIR                          /00587301/ [Concomitant]
     Active Substance: ACYCLOVIR
     Indication: CHRONIC LYMPHOCYTIC LEUKAEMIA
     Dosage: 400 MILLIGRAM
     Route: 048
     Dates: start: 20150409, end: 20150917
  12. COTRIMOXAZOLE [Concomitant]
     Active Substance: SULFAMETHOXAZOLE\TRIMETHOPRIM
     Indication: CHRONIC LYMPHOCYTIC LEUKAEMIA
     Dosage: 480 MILLIGRAM
     Route: 048
     Dates: start: 20150409, end: 20150917
  13. TINZAPARIN [Concomitant]
     Active Substance: TINZAPARIN
     Indication: ANTIFUNGAL PROPHYLAXIS
     Dosage: 1000 IU (INTERNATIONAL UNIT) DAILY;
     Route: 058
     Dates: start: 20151127
  14. G-CSF [Concomitant]
     Active Substance: GRANULOCYTE COLONY-STIMULATING FACTOR NOS
     Indication: PRODUCT USED FOR UNKNOWN INDICATION
     Dosage: UNK
     Route: 065
  15. IDELALISIB [Suspect]
     Active Substance: IDELALISIB
     Indication: CHRONIC LYMPHOCYTIC LEUKAEMIA
     Dosage: CODE NOT BROKEN
     Route: 048
     Dates: start: 20150409, end: 20150917
  16. CO-AMOXICLAV                       /00756801/ [Concomitant]
     Active Substance: AMOXICILLIN\CLAVULANIC ACID
     Indication: LOWER RESPIRATORY TRACT INFECTION
     Dosage: UNK
     Route: 065
  17. TINZAPARIN [Concomitant]
     Active Substance: TINZAPARIN
     Dosage: 10000 UNK
     Route: 058
  18. TINZAPARIN [Concomitant]
     Active Substance: TINZAPARIN
     Dosage: 1000 DOSAGE FORM, QD
     Route: 058
     Dates: start: 20151127
  19. CODEINE PHOSPHATE [Concomitant]
     Active Substance: CODEINE PHOSPHATE
     Indication: ANALGESIC THERAPY
     Dosage: 120 MILLIGRAM DAILY; AS REQUIRED
     Route: 048
     Dates: start: 20151215
  20. BENDAMUSTINE HYDROCHLORIDE. [Suspect]
     Active Substance: BENDAMUSTINE HYDROCHLORIDE
     Indication: CHRONIC LYMPHOCYTIC LEUKAEMIA
     Dosage: 125 MILLIGRAM
     Route: 042
     Dates: start: 20150409, end: 20150917
  21. HYOSCINE BUTYLBROMIDE [Concomitant]
     Active Substance: BUTYLSCOPOLAMINE BROMIDE
     Indication: PRODUCT USED FOR UNKNOWN INDICATION
     Dosage: 4 HOURLY (60 MG MAX DOSE)
     Route: 058
     Dates: start: 20151215
  22. LEVOMEPROMAZINE [Concomitant]
     Active Substance: LEVOMEPROMAZINE
     Indication: NAUSEA
     Dosage: 6.25 MILLIGRAM, Q6H
     Route: 058
     Dates: start: 20151215
  23. METOCLOPRAMIDE. [Concomitant]
     Active Substance: METOCLOPRAMIDE
     Indication: CONSTIPATION
     Dosage: 10 MILLIGRAM
     Route: 048
     Dates: start: 20150409, end: 20150917
  24. SERTRALINE [Suspect]
     Active Substance: SERTRALINE HYDROCHLORIDE
     Indication: DEPRESSION
     Dosage: 50 MILLIGRAM, QD
     Route: 048
     Dates: start: 20151030, end: 20151104
  25. OFATUMUMAB [Suspect]
     Active Substance: OFATUMUMAB
     Indication: CHRONIC LYMPHOCYTIC LEUKAEMIA
     Dosage: 1000 MILLIGRAM (PER PROTOCOL)
     Route: 042
     Dates: start: 20150409, end: 20150917
  26. CHLORPHENAMINE [Concomitant]
     Active Substance: CHLORPHENIRAMINE MALEATE
     Indication: CHRONIC LYMPHOCYTIC LEUKAEMIA
     Dosage: 10 MILLIGRAM
     Route: 042
     Dates: start: 20150409, end: 20150917
  27. CO-AMOXICLAV                       /00756801/ [Concomitant]
     Active Substance: AMOXICILLIN\CLAVULANIC ACID
     Dosage: 625 MILLIGRAM, QD
     Route: 048
     Dates: start: 20151215, end: 20151220
  28. ALLOPURINOL. [Concomitant]
     Active Substance: ALLOPURINOL
     Indication: CHRONIC LYMPHOCYTIC LEUKAEMIA
     Dosage: 300 MILLIGRAM
     Route: 048
     Dates: start: 20150409, end: 20150416

REACTIONS (6)
  - Pulmonary embolism [Not Recovered/Not Resolved]
  - Depression [Not Recovered/Not Resolved]
  - Syncope [Not Recovered/Not Resolved]
  - Confusional state [Not Recovered/Not Resolved]
  - Adenocarcinoma [Recovered/Resolved with Sequelae]
  - Vomiting [Not Recovered/Not Resolved]

NARRATIVE: CASE EVENT DATE: 20151008
